FAERS Safety Report 9400523 (Version 1)
Quarter: 2013Q3

REPORT INFORMATION
  Report Type: Spontaneous
  Country: US (occurrence: US)
  Receive Date: 20130715
  Receipt Date: 20130715
  Transmission Date: 20140515
  Serious: Yes (Other)
  Sender: FDA-Public Use
  Company Number: US-TEVA-418194USA

PATIENT
  Sex: Female

DRUGS (1)
  1. DICLOXACILLIN [Suspect]
     Indication: IMPETIGO

REACTIONS (7)
  - Interstitial lung disease [Unknown]
  - Lung disorder [Unknown]
  - Cough [Unknown]
  - Rash [Unknown]
  - Acne [Unknown]
  - Pruritus [Unknown]
  - Dizziness [Unknown]
